FAERS Safety Report 9961889 (Version 1)
Quarter: 2014Q1

REPORT INFORMATION
  Report Type: Report from Study
  Country: US (occurrence: US)
  Receive Date: 20140305
  Receipt Date: 20140305
  Transmission Date: 20141002
  Serious: Yes (Hospitalization)
  Sender: FDA-Public Use
  Company Number: US-ABBVIE-13P-163-1111514-00

PATIENT
  Age: 52 Year
  Sex: Male
  Weight: 85.81 kg

DRUGS (6)
  1. HUMIRA [Suspect]
     Indication: CROHN^S DISEASE
     Dates: start: 201303
  2. HUMIRA [Suspect]
     Dates: start: 20130626
  3. ENOXAPARIN SODIUM [Concomitant]
     Indication: THROMBOSIS
  4. GABAPENTIN [Concomitant]
     Indication: PAIN
  5. LITHIUM [Concomitant]
     Indication: BIPOLAR DISORDER
  6. MULTIVITAMIN [Concomitant]
     Indication: PRODUCT USED FOR UNKNOWN INDICATION
     Dosage: DAILY

REACTIONS (1)
  - Deep vein thrombosis [Recovering/Resolving]
